FAERS Safety Report 21083918 (Version 1)
Quarter: 2022Q3

REPORT INFORMATION
  Report Type: Spontaneous
  Country: US (occurrence: None)
  Receive Date: 20220714
  Receipt Date: 20220714
  Transmission Date: 20221027
  Serious: Yes (Hospitalization)
  Sender: FDA-Public Use
  Company Number: None

PATIENT
  Sex: Female
  Weight: 35.4 kg

DRUGS (16)
  1. CAPECITABINE [Suspect]
     Active Substance: CAPECITABINE
     Indication: Gastric cancer
     Dosage: OTHER FREQUENCY : DAYS 1-14;?
     Route: 048
  2. CAPECITABINE [Suspect]
     Active Substance: CAPECITABINE
  3. CORTEF [Concomitant]
     Active Substance: HYDROCORTISONE
  4. VITAMIN B12 [Concomitant]
     Active Substance: CYANOCOBALAMIN
  5. MEGESTROL [Concomitant]
     Active Substance: MEGESTROL
  6. SENOKOT [Concomitant]
     Active Substance: SENNOSIDES
  7. ACETAMINOPHEN [Concomitant]
     Active Substance: ACETAMINOPHEN
  8. ACETAMINOPHEN\HYDROCODONE [Concomitant]
     Active Substance: ACETAMINOPHEN\HYDROCODONE
  9. IBUPROFEN [Concomitant]
     Active Substance: IBUPROFEN
  10. PULMICORT TURBUHALER [Concomitant]
     Active Substance: BUDESONIDE
  11. ALBUTEROL\IPRATROPIUM [Concomitant]
     Active Substance: ALBUTEROL\IPRATROPIUM
  12. PANTOPRAZOLE SODIUM [Concomitant]
     Active Substance: PANTOPRAZOLE SODIUM
  13. CYPROHEPATADINE HCL [Concomitant]
  14. ONDANSETRON HCL [Concomitant]
     Active Substance: ONDANSETRON HYDROCHLORIDE
  15. PREDNISONE [Concomitant]
     Active Substance: PREDNISONE
  16. LORAZEPAM [Concomitant]
     Active Substance: LORAZEPAM

REACTIONS (2)
  - Dyspnoea [None]
  - Pneumonia [None]
